FAERS Safety Report 8895532 (Version 1)
Quarter: 2012Q4

REPORT INFORMATION
  Report Type: 
  Country: IT (occurrence: IT)
  Receive Date: 20121107
  Receipt Date: 20121107
  Transmission Date: 20130627
  Serious: Yes (Death, Other)
  Sender: FDA-Public Use
  Company Number: IT-CELGENEUS-083-50794-12103697

PATIENT

DRUGS (4)
  1. VIDAZA [Suspect]
     Indication: MYELODYSPLASTIC SYNDROME
     Route: 065
     Dates: start: 200803, end: 201207
  2. VIDAZA [Suspect]
     Indication: ACUTE MYELOID LEUKAEMIA
  3. VIDAZA [Suspect]
     Indication: MANTLE CELL LYMPHOMA
  4. VIDAZA [Suspect]
     Indication: CHRONIC MYELOMONOCYTIC LEUKAEMIA

REACTIONS (90)
  - Death [Fatal]
  - Blindness [Unknown]
  - Respiratory failure [Unknown]
  - Renal tubular acidosis [Unknown]
  - Blood product transfusion dependent [Unknown]
  - Thrombocytopenia [Unknown]
  - Myelofibrosis [Unknown]
  - Neutropenic sepsis [Unknown]
  - Sepsis [Unknown]
  - Febrile neutropenia [Unknown]
  - Bone marrow failure [Unknown]
  - Pancytopenia [Unknown]
  - Eye haemorrhage [Unknown]
  - Gastrointestinal haemorrhage [Unknown]
  - Haemorrhage [Unknown]
  - Gingival bleeding [Unknown]
  - Neutropenia [Unknown]
  - Leukopenia [Unknown]
  - Renal failure [Unknown]
  - Hepatic failure [Unknown]
  - Coma hepatic [Unknown]
  - Monocytosis [Unknown]
  - Anaemia [Unknown]
  - Drug intolerance [Unknown]
  - Herpes simplex [Unknown]
  - Venous pressure jugular increased [Unknown]
  - Confusional state [Unknown]
  - No therapeutic response [Unknown]
  - Nasopharyngitis [Unknown]
  - Upper respiratory tract infection [Unknown]
  - Urinary tract infection [Unknown]
  - Sinusitis [Unknown]
  - Pharyngitis [Unknown]
  - Rhinitis [Unknown]
  - Decreased appetite [Unknown]
  - Decreased appetite [Unknown]
  - Anxiety [Unknown]
  - Insomnia [Unknown]
  - Dizziness [Unknown]
  - Headache [Unknown]
  - Conjunctival haemorrhage [Unknown]
  - Hypertension [Unknown]
  - Hypotension [Unknown]
  - Haematoma [Unknown]
  - Dyspnoea [Unknown]
  - Dyspnoea exertional [Unknown]
  - Laryngeal pain [Unknown]
  - Diarrhoea [Unknown]
  - Vomiting [Unknown]
  - Constipation [Unknown]
  - Nausea [Unknown]
  - Abdominal pain [Unknown]
  - Haemorrhoidal haemorrhage [Unknown]
  - Stomatitis [Unknown]
  - Dyspepsia [Unknown]
  - Petechiae [Unknown]
  - Pruritus [Unknown]
  - Rash [Unknown]
  - Ecchymosis [Unknown]
  - Purpura [Unknown]
  - Alopecia [Unknown]
  - Erythema [Unknown]
  - Rash macular [Unknown]
  - Arthralgia [Unknown]
  - Myalgia [Unknown]
  - Musculoskeletal pain [Unknown]
  - Fatigue [Unknown]
  - Pyrexia [Unknown]
  - Chest pain [Unknown]
  - Injection site reaction [Unknown]
  - Malaise [Unknown]
  - Weight decreased [Unknown]
  - Hyperhidrosis [Unknown]
  - Pain in extremity [Unknown]
  - Oedema [Unknown]
  - Oropharyngeal pain [Unknown]
  - Oral pain [Unknown]
  - Oral infection [Unknown]
  - Chest pain [Unknown]
  - Abdominal pain upper [Unknown]
  - Skin lesion [Unknown]
  - White blood cell count increased [Unknown]
  - Disease progression [Unknown]
  - Blast cell count increased [Unknown]
  - Haematoma [Unknown]
  - Dyspnoea [Unknown]
  - Hyperhidrosis [Unknown]
  - Pneumonia [Unknown]
  - Blood creatinine increased [Unknown]
  - Haematuria [Unknown]
